FAERS Safety Report 25170620 (Version 2)
Quarter: 2025Q2

REPORT INFORMATION
  Report Type: Spontaneous
  Country: US (occurrence: US)
  Receive Date: 20250408
  Receipt Date: 20250606
  Transmission Date: 20250716
  Serious: Yes (Other)
  Sender: NOVO NORDISK
  Company Number: US-NOVOPROD-1402308

PATIENT
  Age: 82 Year
  Sex: Male
  Weight: 69 kg

DRUGS (3)
  1. OZEMPIC [Suspect]
     Active Substance: SEMAGLUTIDE
     Indication: Type 2 diabetes mellitus
     Dosage: 0.25 MG, QW
     Route: 058
     Dates: start: 20250313
  2. METFORMIN [Concomitant]
     Active Substance: METFORMIN HYDROCHLORIDE
     Indication: Product used for unknown indication
  3. EMPAGLIFLOZIN [Suspect]
     Active Substance: EMPAGLIFLOZIN
     Indication: Product used for unknown indication

REACTIONS (11)
  - Hypophagia [Recovered/Resolved]
  - Gait disturbance [Recovered/Resolved]
  - Fall [Recovered/Resolved]
  - Asthenia [Recovered/Resolved]
  - Decreased appetite [Recovered/Resolved]
  - Dizziness [Recovered/Resolved]
  - Cough [Recovered/Resolved]
  - Feeding disorder [Recovered/Resolved]
  - Muscular weakness [Recovered/Resolved]
  - Hypersensitivity [Recovered/Resolved]
  - Product prescribing error [Unknown]

NARRATIVE: CASE EVENT DATE: 20250313
